FAERS Safety Report 18302237 (Version 1)
Quarter: 2020Q3

REPORT INFORMATION
  Report Type: Spontaneous
  Country: AR (occurrence: AR)
  Receive Date: 20200923
  Receipt Date: 20200923
  Transmission Date: 20201103
  Serious: Yes (Other)
  Sender: FDA-Public Use
  Company Number: AR-PFIZER INC-2020365078

PATIENT
  Age: 43 Year
  Sex: Female

DRUGS (1)
  1. XELJANZ [Suspect]
     Active Substance: TOFACITINIB CITRATE
     Dosage: UNK

REACTIONS (6)
  - Gait disturbance [Unknown]
  - Peripheral swelling [Unknown]
  - Joint swelling [Unknown]
  - Hypokinesia [Unknown]
  - Bone deformity [Unknown]
  - Foot deformity [Unknown]
